FAERS Safety Report 22287440 (Version 1)
Quarter: 2023Q2

REPORT INFORMATION
  Report Type: Spontaneous
  Country: CH (occurrence: CH)
  Receive Date: 20230505
  Receipt Date: 20230505
  Transmission Date: 20230721
  Serious: Yes (Hospitalization, Other)
  Sender: FDA-Public Use
  Company Number: CH-AJANTA-2023AJA00069

PATIENT
  Age: 49 Year
  Sex: Female

DRUGS (10)
  1. VORICONAZOLE [Suspect]
     Active Substance: VORICONAZOLE
     Indication: Acute myeloid leukaemia
     Route: 042
  2. VORICONAZOLE [Suspect]
     Active Substance: VORICONAZOLE
     Dosage: MAINTENANCE DOSE
     Route: 042
  3. VORICONAZOLE [Suspect]
     Active Substance: VORICONAZOLE
     Route: 042
  4. VORICONAZOLE [Suspect]
     Active Substance: VORICONAZOLE
     Route: 048
  5. VORICONAZOLE [Suspect]
     Active Substance: VORICONAZOLE
     Route: 048
  6. VORICONAZOLE [Suspect]
     Active Substance: VORICONAZOLE
     Route: 048
  7. MIDOSTAURIN [Suspect]
     Active Substance: MIDOSTAURIN
  8. DAUNORUBICIN [Concomitant]
     Active Substance: DAUNORUBICIN
     Indication: Acute myeloid leukaemia
  9. CYTARABINE [Concomitant]
     Active Substance: CYTARABINE
     Indication: Acute myeloid leukaemia
  10. CLARITHROMYCIN [Concomitant]
     Active Substance: CLARITHROMYCIN

REACTIONS (3)
  - Drug interaction [Recovered/Resolved]
  - Neurotoxicity [Recovered/Resolved]
  - Hallucination, visual [Recovered/Resolved]
